FAERS Safety Report 23153334 (Version 1)
Quarter: 2023Q4

REPORT INFORMATION
  Report Type: Spontaneous
  Country: IT (occurrence: IT)
  Receive Date: 20231107
  Receipt Date: 20231107
  Transmission Date: 20240109
  Serious: Yes (Hospitalization, Other)
  Sender: FDA-Public Use
  Company Number: None

PATIENT
  Age: 69 Year
  Sex: Female

DRUGS (13)
  1. KEYTRUDA [Suspect]
     Active Substance: PEMBROLIZUMAB
     Indication: Breast neoplasm
     Dosage: 200 MG FIRST ADMINISTRATION
     Route: 042
     Dates: start: 20230804, end: 20230804
  2. LINAGLIPTIN [Concomitant]
     Active Substance: LINAGLIPTIN
     Dosage: 5 MG, 1 TABLET AT 8:00 AM
  3. NEBIVOLOL [Concomitant]
     Active Substance: NEBIVOLOL
     Dosage: LOBIVON 5 MG, 1 TABLET 8:00 AM
  4. LANTUS [Concomitant]
     Active Substance: INSULIN GLARGINE
     Route: 058
  5. ALPRAZOLAM [Concomitant]
     Active Substance: ALPRAZOLAM
     Dosage: XANAX 0.5 MG R.P., 1 TABLET AT 9.00 PM
  6. PACLITAXEL [Concomitant]
     Active Substance: PACLITAXEL
     Indication: Breast neoplasm
     Dosage: 130 MG FIRST ADMINISTRATION
     Route: 042
     Dates: start: 20230804, end: 20230804
  7. HUMALOG [Concomitant]
     Active Substance: INSULIN LISPRO
     Dosage: 4 IU AT 8:00 AM, 6 IU AT 12:00 PM, 6 IU AT 7:00 PM
  8. ASPIRIN [Concomitant]
     Active Substance: ASPIRIN
     Dosage: 100 MG, 1 TABLET AT 12:00
  9. CARBOPLATIN [Concomitant]
     Active Substance: CARBOPLATIN
     Indication: Breast neoplasm
     Dosage: 120 MG FIRST ADMINISTRATION
     Route: 042
     Dates: start: 20230804, end: 20230804
  10. ROSUVASTATIN [Concomitant]
     Active Substance: ROSUVASTATIN
     Dosage: CRESTOR 10 MG 1 TABLET AT 8.00 PM
  11. POLYETHYLENE GLYCOL 3350\POTASSIUM CHLORIDE\SODIUM BICARBONATE\SODIUM [Concomitant]
     Active Substance: POLYETHYLENE GLYCOL 3350\POTASSIUM CHLORIDE\SODIUM BICARBONATE\SODIUM CHLORIDE
  12. HYDROCHLOROTHIAZIDE\OLMESARTAN MEDOXOMIL [Concomitant]
     Active Substance: HYDROCHLOROTHIAZIDE\OLMESARTAN MEDOXOMIL
     Dosage: 40 MG/25 MG, 1 TABLET AT 8:00 AM
  13. MYCOSTATIN [Concomitant]
     Active Substance: NYSTATIN
     Dosage: 5 ML 2 TIMES A DAY BETWEEN MEALS

REACTIONS (4)
  - Neutropenia [Recovered/Resolved]
  - Pyrexia [Recovered/Resolved]
  - Purpura [Recovering/Resolving]
  - Lip oedema [Recovered/Resolved]

NARRATIVE: CASE EVENT DATE: 20230811
